FAERS Safety Report 7038151-8 (Version None)
Quarter: 2010Q4

REPORT INFORMATION
  Report Type: 
  Country: None (occurrence: None)
  Receive Date: 20101011
  Receipt Date: 20101004
  Transmission Date: 20110411
  Serious: Yes (Hospitalization, Other)
  Sender: FDA-Public Use
  Company Number: US-AMGEN-QUU434302

PATIENT
  Sex: Female
  Weight: 50.2 kg

DRUGS (25)
  1. NPLATE [Suspect]
     Indication: THROMBOCYTOPENIA
     Route: 058
     Dates: start: 20100309
  2. CELL CEPT [Concomitant]
  3. PROGRAF [Concomitant]
  4. PREDNISONE [Concomitant]
  5. SPRYCEL [Concomitant]
  6. URSODIOL [Concomitant]
  7. ATIVAN [Concomitant]
  8. GLIPIZIDE [Concomitant]
  9. ASCORBIC ACID [Concomitant]
     Route: 048
  10. NEURONTIN [Concomitant]
  11. MULTI-VITAMINS [Concomitant]
  12. MS CONTIN [Concomitant]
     Route: 048
  13. OXYCODONE [Concomitant]
  14. ACYCLOVIR SODIUM [Concomitant]
  15. NOXAFIL [Concomitant]
  16. SEPTRA [Concomitant]
  17. TRIAMCINOLONE [Concomitant]
     Route: 061
  18. SIROLIMUS [Concomitant]
  19. POTASSIUM CHLORIDE [Concomitant]
  20. INSULIN [Concomitant]
  21. AZITHROMYCIN [Concomitant]
  22. ZOFRAN [Concomitant]
  23. PERCOCET [Concomitant]
  24. MAGNESIUM OXIDE [Concomitant]
  25. DASATINIB [Concomitant]
     Dates: start: 20090101

REACTIONS (8)
  - ASTHENIA [None]
  - BLOOD POTASSIUM INCREASED [None]
  - DECREASED APPETITE [None]
  - DEEP VEIN THROMBOSIS [None]
  - FATIGUE [None]
  - INSOMNIA [None]
  - MYOPATHY [None]
  - NAUSEA [None]
